FAERS Safety Report 24165510 (Version 3)
Quarter: 2025Q1

REPORT INFORMATION
  Report Type: Spontaneous
  Country: CA (occurrence: CA)
  Receive Date: 20240802
  Receipt Date: 20250206
  Transmission Date: 20250408
  Serious: Yes (Other)
  Sender: PFIZER
  Company Number: CA-PFIZER INC-202400042665

PATIENT
  Age: 32 Year
  Sex: Female
  Weight: 72.7 kg

DRUGS (5)
  1. RUXIENCE [Suspect]
     Active Substance: RITUXIMAB-PVVR
     Indication: Relapsing-remitting multiple sclerosis
     Route: 042
     Dates: start: 20240726
  2. RUXIENCE [Suspect]
     Active Substance: RITUXIMAB-PVVR
     Route: 042
     Dates: start: 20240809
  3. ACETAMINOPHEN [Concomitant]
     Active Substance: ACETAMINOPHEN
     Indication: Premedication
     Dates: start: 20240809, end: 20240809
  4. DIPHENHYDRAMINE [Concomitant]
     Active Substance: DIPHENHYDRAMINE
     Indication: Premedication
     Dates: start: 20240809, end: 20240809
  5. METHYLPREDNISOLONE [Concomitant]
     Active Substance: METHYLPREDNISOLONE
     Indication: Premedication
     Dates: start: 20240809, end: 20240809

REACTIONS (12)
  - Wheezing [Recovered/Resolved]
  - Ear pruritus [Recovered/Resolved]
  - Paraesthesia oral [Recovered/Resolved]
  - Blood pressure decreased [Unknown]
  - Heart rate abnormal [Unknown]
  - Heart rate decreased [Recovering/Resolving]
  - Nervousness [Unknown]
  - Off label use [Unknown]
  - Fatigue [Unknown]
  - Eye pain [Unknown]
  - Disease recurrence [Unknown]
  - Dry eye [Unknown]

NARRATIVE: CASE EVENT DATE: 20240726
